FAERS Safety Report 10119604 (Version 2)
Quarter: 2014Q4

REPORT INFORMATION
  Report Type: Spontaneous
  Country: US (occurrence: US)
  Receive Date: 20140425
  Receipt Date: 20141112
  Transmission Date: 20150528
  Serious: No
  Sender: FDA-Public Use
  Company Number: US-PFIZER INC-2014111716

PATIENT
  Age: 46 Year
  Sex: Male

DRUGS (1)
  1. XALKORI [Suspect]
     Active Substance: CRIZOTINIB
     Indication: LUNG NEOPLASM MALIGNANT
     Dosage: 250 MG, DAILY
     Dates: start: 20121005

REACTIONS (5)
  - Hypoaesthesia [Unknown]
  - Chest pain [Unknown]
  - Vomiting [Unknown]
  - Nausea [Unknown]
  - Myalgia [Unknown]

NARRATIVE: CASE EVENT DATE: 2014
